FAERS Safety Report 12528560 (Version 1)
Quarter: 2016Q3

REPORT INFORMATION
  Report Type: Spontaneous
  Country: HU (occurrence: HU)
  Receive Date: 20160705
  Receipt Date: 20160705
  Transmission Date: 20161109
  Serious: Yes (Other)
  Sender: FDA-Public Use
  Company Number: HU-PFIZER INC-2016328303

PATIENT
  Age: 55 Year
  Sex: Male

DRUGS (2)
  1. LANREOTIDE [Suspect]
     Active Substance: LANREOTIDE
     Dosage: UNK
     Dates: start: 201109
  2. PEGVISOMANT [Suspect]
     Active Substance: PEGVISOMANT
     Dosage: UNK
     Dates: start: 201109

REACTIONS (3)
  - Dysuria [Unknown]
  - Diabetes mellitus [Unknown]
  - Condition aggravated [Unknown]
